FAERS Safety Report 4852743-3 (Version None)
Quarter: 2005Q4

REPORT INFORMATION
  Report Type: 
  Country: None (occurrence: None)
  Receive Date: 20051213
  Receipt Date: 20051004
  Transmission Date: 20060501
  Serious: Yes (Disabling)
  Sender: FDA-Public Use
  Company Number: US-MERCK-0510USA02261

PATIENT
  Age: 51 Year
  Sex: Male
  Weight: 105 kg

DRUGS (8)
  1. ZETIA [Suspect]
     Indication: HYPERCHOLESTEROLAEMIA
     Route: 048
  2. PRAVACHOL [Concomitant]
     Route: 065
  3. MICARDIS [Concomitant]
     Route: 065
  4. COENZYME Q10 [Concomitant]
     Route: 065
  5. OMEGA-3 MARINE TRIGLYCERIDES [Concomitant]
     Route: 065
  6. THIOCTIC ACID [Concomitant]
     Route: 065
  7. CHONDROITIN SULFATE SODIUM AND GLUCOSAMINE HYDROCHLORIDE [Concomitant]
     Route: 065
  8. ASCORBIC ACID [Concomitant]
     Route: 065

REACTIONS (3)
  - ASTHENIA [None]
  - FATIGUE [None]
  - MYALGIA [None]
